FAERS Safety Report 20314878 (Version 1)
Quarter: 2022Q1

REPORT INFORMATION
  Report Type: Report from Study
  Country: CA (occurrence: CA)
  Receive Date: 20220110
  Receipt Date: 20220110
  Transmission Date: 20220423
  Serious: Yes (Other)
  Sender: FDA-Public Use
  Company Number: CA-ABBVIE-21K-028-4167651-00

PATIENT
  Sex: Female

DRUGS (1)
  1. RINVOQ [Suspect]
     Active Substance: UPADACITINIB
     Indication: Rheumatoid arthritis
     Route: 048
     Dates: start: 20201209, end: 20211116

REACTIONS (7)
  - Breast cancer stage I [Unknown]
  - Back pain [Unknown]
  - Glaucoma [Unknown]
  - Visual impairment [Unknown]
  - Protein total increased [Unknown]
  - Red blood cell sedimentation rate increased [Unknown]
  - Herpes zoster [Unknown]

NARRATIVE: CASE EVENT DATE: 20210101
